FAERS Safety Report 5705440-6 (Version None)
Quarter: 2008Q2

REPORT INFORMATION
  Report Type: 
  Country: None (occurrence: None)
  Receive Date: 20080410
  Receipt Date: 20080328
  Transmission Date: 20081010
  Serious: Yes (Disabling)
  Sender: FDA-Public Use
  Company Number: 2008S1005694

PATIENT
  Age: 36 Year
  Sex: Female

DRUGS (1)
  1. PIROXICAM [Suspect]
     Indication: RHEUMATOID ARTHRITIS
     Dosage: 20 MG; CAPSULE; ORAL; ONCE
     Route: 048

REACTIONS (12)
  - BURNING SENSATION [None]
  - EATING DISORDER [None]
  - EROSIVE OESOPHAGITIS [None]
  - GASTRIC ULCER [None]
  - LUNG DISORDER [None]
  - OESOPHAGEAL ULCER [None]
  - ORAL ADMINISTRATION COMPLICATION [None]
  - PAIN [None]
  - PHARMACEUTICAL PRODUCT COMPLAINT [None]
  - PHARYNGOLARYNGEAL PAIN [None]
  - THROAT IRRITATION [None]
  - WEIGHT DECREASED [None]
